FAERS Safety Report 6441419-7 (Version None)
Quarter: 2009Q4

REPORT INFORMATION
  Report Type: 
  Country: None (occurrence: None)
  Receive Date: 20091116
  Receipt Date: 20091021
  Transmission Date: 20100525
  Serious: Yes (Death, Disabling)
  Sender: FDA-Public Use
  Company Number: US-BAYER-200835136NA

PATIENT
  Sex: Male

DRUGS (6)
  1. MAGNEVIST [Suspect]
     Indication: DIAGNOSTIC PROCEDURE
     Route: 042
  2. OMNISCAN [Suspect]
     Indication: DIAGNOSTIC PROCEDURE
  3. OPTIMARK [Suspect]
     Indication: DIAGNOSTIC PROCEDURE
  4. PROHANCE [Suspect]
     Indication: DIAGNOSTIC PROCEDURE
  5. MULTIHANCE [Suspect]
     Indication: DIAGNOSTIC PROCEDURE
  6. SEVERAL MEDICATIONS [Concomitant]
     Indication: PAIN

REACTIONS (13)
  - ABASIA [None]
  - ASTHENIA [None]
  - GAIT DISTURBANCE [None]
  - HYPOAESTHESIA [None]
  - JOINT RANGE OF MOTION DECREASED [None]
  - MUSCLE TIGHTNESS [None]
  - MUSCULOSKELETAL STIFFNESS [None]
  - NEPHROGENIC SYSTEMIC FIBROSIS [None]
  - PAIN [None]
  - PRURITUS GENERALISED [None]
  - SCAR [None]
  - SKIN DISCOLOURATION [None]
  - SKIN TIGHTNESS [None]
